FAERS Safety Report 12468099 (Version 1)
Quarter: 2016Q2

REPORT INFORMATION
  Report Type: Report from Study
  Country: JP (occurrence: JP)
  Receive Date: 20160615
  Receipt Date: 20160615
  Transmission Date: 20160815
  Serious: Yes (Hospitalization)
  Sender: FDA-Public Use
  Company Number: JP-PFIZER INC-2016292669

PATIENT
  Age: 76 Year
  Sex: Male
  Weight: 35.5 kg

DRUGS (8)
  1. SULFAMETHOXAZOLE [Concomitant]
     Active Substance: SULFAMETHOXAZOLE
  2. TALION /01587402/ [Concomitant]
     Active Substance: BEPOTASTINE
  3. KETOPROFEN. [Concomitant]
     Active Substance: KETOPROFEN
  4. EDIROL [Concomitant]
     Active Substance: ELDECALCITOL
  5. CRESTOR [Concomitant]
     Active Substance: ROSUVASTATIN CALCIUM
  6. PARIET [Concomitant]
     Active Substance: RABEPRAZOLE SODIUM
  7. TRAMCET [Concomitant]
     Active Substance: ACETAMINOPHEN\TRAMADOL
  8. TOFACITINIB CITRATE [Suspect]
     Active Substance: TOFACITINIB CITRATE
     Dosage: 5 MG, 2X/DAY
     Route: 048
     Dates: start: 20151112, end: 20151204

REACTIONS (1)
  - Gastroenteritis [Recovered/Resolved]

NARRATIVE: CASE EVENT DATE: 20151203
